FAERS Safety Report 6918502-2 (Version None)
Quarter: 2010Q3

REPORT INFORMATION
  Report Type: 
  Country: None (occurrence: None)
  Receive Date: 20100811
  Receipt Date: 20100809
  Transmission Date: 20110219
  Serious: Yes (Other)
  Sender: FDA-Public Use
  Company Number: US-ASTRAZENECA-2007UW27638

PATIENT
  Age: 535 Month
  Sex: Female
  Weight: 46.3 kg

DRUGS (2)
  1. SEROQUEL [Suspect]
     Indication: ANXIETY
     Dosage: 25-200 MG
     Route: 048
     Dates: start: 20021018, end: 20060220
  2. SEROQUEL [Suspect]
     Indication: DEPRESSION
     Dosage: 25-200 MG
     Route: 048
     Dates: start: 20021018, end: 20060220

REACTIONS (11)
  - BACK INJURY [None]
  - DIABETIC COMA [None]
  - DIABETIC COMPLICATION [None]
  - DIABETIC KETOACIDOSIS [None]
  - GASTROINTESTINAL DISORDER [None]
  - ILL-DEFINED DISORDER [None]
  - INTESTINAL OBSTRUCTION [None]
  - PANCREATIC DISORDER [None]
  - PANCREATITIS [None]
  - THROMBOSIS [None]
  - TYPE 2 DIABETES MELLITUS [None]
